FAERS Safety Report 5077038-7 (Version None)
Quarter: 2006Q3

REPORT INFORMATION
  Report Type: 
  Country: None (occurrence: None)
  Receive Date: 20060810
  Receipt Date: 20060619
  Transmission Date: 20061208
  Serious: Yes (Hospitalization)
  Sender: FDA-Public Use
  Company Number: 2006SE03455

PATIENT
  Age: 27684 Day
  Sex: Male
  Weight: 64 kg

DRUGS (3)
  1. BLOPRESS [Suspect]
     Indication: HYPERTENSION
     Route: 048
     Dates: start: 20060407, end: 20060519
  2. HYPOCA [Concomitant]
     Indication: HYPERTENSION
     Route: 048
     Dates: start: 19921029
  3. LIPOVAS [Concomitant]
     Indication: HYPERLIPIDAEMIA
     Route: 048
     Dates: start: 19950811

REACTIONS (20)
  - AMMONIA INCREASED [None]
  - BLADDER DISORDER [None]
  - BLADDER MASS [None]
  - BLOOD PRESSURE INCREASED [None]
  - CEREBRAL ISCHAEMIA [None]
  - CONFUSIONAL STATE [None]
  - CONVULSION [None]
  - CYSTITIS NONINFECTIVE [None]
  - ENCEPHALITIS [None]
  - FALL [None]
  - HEART RATE INCREASED [None]
  - HEPATIC CYST [None]
  - LOSS OF CONSCIOUSNESS [None]
  - LUNG NEOPLASM [None]
  - NEUROGENIC BLADDER [None]
  - NUCLEAR MAGNETIC RESONANCE IMAGING BRAIN ABNORMAL [None]
  - PLEURAL CALCIFICATION [None]
  - PROSTATE EXAMINATION ABNORMAL [None]
  - RENAL CYST [None]
  - RESTLESSNESS [None]
